FAERS Safety Report 10088272 (Version 2)
Quarter: 2014Q2

REPORT INFORMATION
  Report Type: Spontaneous
  Country: JP (occurrence: JP)
  Receive Date: 20140421
  Receipt Date: 20140606
  Transmission Date: 20141212
  Serious: Yes (Hospitalization)
  Sender: FDA-Public Use
  Company Number: JP-ROCHE-1383109

PATIENT
  Age: 28 Year
  Sex: Female
  Weight: 58 kg

DRUGS (20)
  1. TAMIFLU [Suspect]
     Indication: INFLUENZA
     Route: 048
     Dates: start: 20140208, end: 20140212
  2. WARFARIN [Suspect]
     Indication: PROPHYLAXIS
     Route: 048
     Dates: start: 20121017, end: 20140211
  3. WARFARIN [Suspect]
     Indication: PROPHYLAXIS
     Route: 048
     Dates: start: 20140214
  4. WARFARIN [Suspect]
     Route: 048
     Dates: start: 20140304
  5. CARBAZOCHROME SODIUM SULFONATE [Concomitant]
     Dosage: DOSAGE IS UNCERTAIN.
     Route: 042
  6. ASCORBIC ACID [Concomitant]
     Dosage: DOSAGE IS UNCERTAIN.
     Route: 065
  7. LANSOPRAZOLE [Concomitant]
     Dosage: DOSAGE IS UNCERTAIN.
     Route: 048
  8. PREDNISOLONE [Concomitant]
     Dosage: 5 MG (20 MG - 20 MG- 10 MG)
     Route: 048
  9. PREDNISOLONE [Concomitant]
     Route: 048
     Dates: start: 20140118
  10. SODIUM VALPROATE [Concomitant]
     Dosage: 200MG/4ML IM THE MORNING: IN THE EVENING (3:2).
     Route: 048
  11. BACTRAMIN [Concomitant]
     Route: 048
     Dates: start: 20120122
  12. DEZOLAM [Concomitant]
     Route: 048
  13. PLATIBIT [Concomitant]
     Dosage: DOSAGE IS UNCERTAIN.
     Route: 048
     Dates: start: 20130810
  14. KIPRES [Concomitant]
     Indication: ASTHMA
     Dosage: DOSAGE IS UNCERTAIN.
     Route: 048
     Dates: start: 20121212
  15. THEODUR [Concomitant]
     Indication: ASTHMA
     Dosage: DOSAGE IS UNCERTAIN.
     Route: 048
     Dates: start: 20121110
  16. RACOL-NF [Concomitant]
     Dosage: DOSAGE IS UNCERTAIN.
     Route: 048
     Dates: start: 20121117
  17. LAC-B [Concomitant]
     Dosage: DOSAGE IS UNCERTAIN.
     Route: 048
     Dates: start: 20121212
  18. ALOSENN [Concomitant]
     Dosage: DOSAGE IS UNCERTAIN.
     Route: 048
     Dates: start: 20121023
  19. TULOBUTEROL [Concomitant]
     Indication: ASTHMA
     Route: 062
     Dates: start: 20121025
  20. ADOAIR [Concomitant]
     Indication: ASTHMA
     Dosage: RESPIRATORY INHALATION
     Route: 065
     Dates: start: 20130409

REACTIONS (2)
  - Epistaxis [Recovered/Resolved]
  - Prothrombin time ratio increased [Recovered/Resolved]
